FAERS Safety Report 5871495-1 (Version None)
Quarter: 2008Q3

REPORT INFORMATION
  Report Type: 
  Country: None (occurrence: None)
  Receive Date: 20080905
  Receipt Date: 20080311
  Transmission Date: 20090109
  Serious: No
  Sender: FDA-Public Use
  Company Number: A0712238A

PATIENT
  Age: 87 Year
  Sex: Male
  Weight: 68.2 kg

DRUGS (7)
  1. REQUIP [Suspect]
     Indication: RESTLESS LEGS SYNDROME
     Dosage: .5MG PER DAY
     Route: 048
     Dates: start: 20080222
  2. PROCARDIA [Concomitant]
  3. COZAAR [Concomitant]
  4. ATENOLOL [Concomitant]
  5. HYDROCHLOROTHIAZIDE [Concomitant]
  6. AGRYLIN [Concomitant]
  7. SODIUM POLYSTYRENE [Concomitant]

REACTIONS (1)
  - FATIGUE [None]
